FAERS Safety Report 6910211-9 (Version None)
Quarter: 2010Q3

REPORT INFORMATION
  Report Type: 
  Country: None (occurrence: None)
  Receive Date: 20100806
  Receipt Date: 20100803
  Transmission Date: 20110219
  Serious: Yes (Death)
  Sender: FDA-Public Use
  Company Number: JP-SANOFI-AVENTIS-2010SA031588

PATIENT
  Age: 78 Year
  Sex: Male

DRUGS (3)
  1. OXALIPLATIN [Suspect]
     Indication: COLON CANCER
     Route: 041
     Dates: start: 20100402, end: 20100402
  2. OXALIPLATIN [Suspect]
     Route: 041
     Dates: start: 20100423, end: 20100423
  3. XELODA [Suspect]
     Indication: COLON CANCER
     Dosage: TRI-WEEKLY
     Route: 048
     Dates: start: 20100402, end: 20100503

REACTIONS (7)
  - ACUTE RESPIRATORY FAILURE [None]
  - DECREASED APPETITE [None]
  - DIZZINESS [None]
  - NAUSEA [None]
  - PALMAR-PLANTAR ERYTHRODYSAESTHESIA SYNDROME [None]
  - PNEUMONIA ASPIRATION [None]
  - VOMITING [None]
